FAERS Safety Report 5499771-5 (Version None)
Quarter: 2007Q4

REPORT INFORMATION
  Report Type: 
  Country: None (occurrence: None)
  Receive Date: 20071026
  Receipt Date: 20071015
  Transmission Date: 20080405
  Serious: Yes (Other)
  Sender: FDA-Public Use
  Company Number: BR-PFIZER INC-2007053338

PATIENT
  Sex: Female
  Weight: 80.5 kg

DRUGS (4)
  1. CHANTIX [Suspect]
     Indication: TOBACCO USER
     Route: 048
     Dates: start: 20070501, end: 20070601
  2. ZOLOFT [Concomitant]
  3. TOPAMAX [Concomitant]
  4. ALL OTHER THERAPEUTIC PRODUCTS [Concomitant]

REACTIONS (4)
  - ANOREXIA [None]
  - FLATULENCE [None]
  - NAUSEA [None]
  - WEIGHT DECREASED [None]
